FAERS Safety Report 16820046 (Version 1)
Quarter: 2019Q3

REPORT INFORMATION
  Report Type: Report from Study
  Country: US (occurrence: US)
  Receive Date: 20190918
  Receipt Date: 20190918
  Transmission Date: 20191005
  Serious: Yes (Hospitalization)
  Sender: FDA-Public Use
  Company Number: US-B.I. PHARMACEUTICALS,INC./RIDGEFIELD-2019-BI-102430

PATIENT
  Sex: Male

DRUGS (2)
  1. OFEV [Suspect]
     Active Substance: NINTEDANIB
     Indication: GLOMERULONEPHRITIS MEMBRANOUS
  2. OFEV [Suspect]
     Active Substance: NINTEDANIB
     Indication: NEPHRITIC SYNDROME
     Route: 048

REACTIONS (4)
  - Chest pain [Unknown]
  - Weight decreased [Unknown]
  - Depression [Unknown]
  - Dyspepsia [Not Recovered/Not Resolved]
